FAERS Safety Report 8982785 (Version 1)
Quarter: 2012Q4

REPORT INFORMATION
  Report Type: 
  Country: US (occurrence: US)
  Receive Date: 20121224
  Receipt Date: 20121224
  Transmission Date: 20130627
  Serious: Yes (Other)
  Sender: FDA-Public Use
  Company Number: US-ROCHE-GNE280369

PATIENT
  Age: 40 Year
  Sex: Female
  Weight: 113.72 kg

DRUGS (18)
  1. XOLAIR [Suspect]
     Indication: ASTHMA
     Dosage: 150 mg, Q4W
     Route: 058
     Dates: start: 20071023, end: 200904
  2. ADVAIR [Concomitant]
     Indication: ASTHMA
     Dosage: 1 puff, bid, Dose=1 puff, Daily Dose=2 puff
     Route: 048
     Dates: start: 2007
  3. RHINOCORT [Concomitant]
     Indication: RHINITIS ALLERGIC
     Dosage: 2 UNK, qd
     Route: 045
     Dates: start: 2007
  4. ATROVENT [Concomitant]
     Indication: RHINITIS ALLERGIC
     Dosage: 10 mg, qd
     Route: 048
     Dates: start: 2008
  5. KLONOPIN [Concomitant]
     Indication: ANXIETY
     Dosage: 0.5 mg, prn
     Route: 048
  6. EFFEXOR [Concomitant]
     Indication: PRODUCT USED FOR UNKNOWN INDICATION
  7. WELLBUTRIN [Concomitant]
     Indication: PRODUCT USED FOR UNKNOWN INDICATION
  8. DIOVAN HCT [Concomitant]
     Indication: PRODUCT USED FOR UNKNOWN INDICATION
  9. SIMVASTATIN [Concomitant]
     Indication: PRODUCT USED FOR UNKNOWN INDICATION
  10. PREDNISONE [Concomitant]
     Indication: PRODUCT USED FOR UNKNOWN INDICATION
  11. PROVENTIL [Concomitant]
     Indication: PRODUCT USED FOR UNKNOWN INDICATION
  12. FLOVENT [Concomitant]
     Indication: PRODUCT USED FOR UNKNOWN INDICATION
  13. MICRO-K [Concomitant]
     Indication: PRODUCT USED FOR UNKNOWN INDICATION
  14. SINGULAIR [Concomitant]
     Indication: ASTHMA
     Dosage: 10 mg, qd
     Route: 048
     Dates: start: 2007
  15. ALBUTEROL [Concomitant]
     Indication: ASTHMA
     Dosage: 4 puff, Q6H, Dose=4 puff, Daily Dose=16 puff
     Route: 048
     Dates: start: 2007
  16. LISINOPRIL [Concomitant]
     Indication: HYPERTENSION
     Dosage: 20 mg, qd
     Route: 048
     Dates: end: 200905
  17. LIPITOR [Concomitant]
     Indication: HYPERLIPIDAEMIA
     Dosage: 10 mg, qd
     Route: 048
  18. METFORMIN [Concomitant]
     Indication: DIABETES MELLITUS
     Dosage: 500 mg, bid
     Route: 048

REACTIONS (3)
  - Hypersensitivity [Recovered/Resolved]
  - Throat irritation [Unknown]
  - Vomiting [Unknown]
